FAERS Safety Report 9937963 (Version 3)
Quarter: 2014Q2

REPORT INFORMATION
  Report Type: Report from Study
  Country: CA (occurrence: CA)
  Receive Date: 20140303
  Receipt Date: 20140429
  Transmission Date: 20141212
  Serious: Yes (Hospitalization)
  Sender: FDA-Public Use
  Company Number: CA-ROCHE-1348910

PATIENT
  Age: 51 Year
  Sex: Female
  Weight: 72.6 kg

DRUGS (10)
  1. ACTEMRA [Suspect]
     Indication: RHEUMATOID ARTHRITIS
     Route: 042
     Dates: start: 20130411
  2. PREDNISONE [Concomitant]
  3. METHOTREXATE [Concomitant]
  4. FOLIC ACID [Concomitant]
  5. ROSUVASTATIN [Concomitant]
  6. ALENDRONATE [Concomitant]
  7. SULFASALAZINE [Concomitant]
  8. CITALOPRAM [Concomitant]
  9. RABEPRAZOLE [Concomitant]
  10. PERCOCET [Concomitant]

REACTIONS (6)
  - Pyrexia [Recovered/Resolved]
  - Local swelling [Recovered/Resolved]
  - Dyspnoea [Recovered/Resolved]
  - Musculoskeletal stiffness [Recovered/Resolved]
  - Malaise [Unknown]
  - Nasopharyngitis [Unknown]
